FAERS Safety Report 6217232-2 (Version None)
Quarter: 2009Q2

REPORT INFORMATION
  Report Type: 
  Country: None (occurrence: None)
  Receive Date: 20090608
  Receipt Date: 20090604
  Transmission Date: 20091009
  Serious: Yes (Hospitalization)
  Sender: FDA-Public Use
  Company Number: DE-PFIZER INC-2009199486

PATIENT
  Age: 83 Year

DRUGS (5)
  1. AMLODIPINE BESILATE [Suspect]
     Indication: HYPERTENSION
     Dosage: 1X/DAY
     Route: 048
     Dates: start: 20050101
  2. ACETYLSALICYLIC ACID SRT [Interacting]
     Indication: CORONARY ARTERY DISEASE
     Dosage: 100 MG, 1X/DAY
     Route: 048
     Dates: start: 20070101
  3. VALSARTAN [Concomitant]
     Indication: HYPERTENSION
     Dosage: 1X/DAY
     Route: 048
     Dates: start: 20070101
  4. FERROUS SULFATE [Concomitant]
     Indication: IRON DEFICIENCY ANAEMIA
     Dosage: 1X/DAY
  5. NEXIUM [Concomitant]
     Indication: GASTROOESOPHAGEAL REFLUX DISEASE
     Dosage: 2X/DAY
     Dates: start: 20070101

REACTIONS (2)
  - DRUG INTERACTION [None]
  - GASTROINTESTINAL HAEMORRHAGE [None]
